FAERS Safety Report 9350803 (Version 1)
Quarter: 2013Q2

REPORT INFORMATION
  Report Type: Spontaneous
  Country: DE (occurrence: DE)
  Receive Date: 20130617
  Receipt Date: 20130617
  Transmission Date: 20140414
  Serious: Yes (Hospitalization, Other)
  Sender: FDA-Public Use
  Company Number: DE-JNJFOC-20130313242

PATIENT
  Age: 87 Year
  Sex: Male
  Weight: 104 kg

DRUGS (7)
  1. XARELTO [Suspect]
     Indication: CEREBROVASCULAR ACCIDENT PROPHYLAXIS
     Route: 048
  2. XARELTO [Suspect]
     Indication: ATRIAL FIBRILLATION
     Route: 048
  3. HCT [Concomitant]
     Indication: HYPERTENSION
     Route: 065
     Dates: start: 2009
  4. CITALOPRAM [Concomitant]
     Indication: DEPRESSION
     Route: 065
     Dates: start: 2009
  5. ENALAPRIL [Concomitant]
     Route: 065
     Dates: start: 2009
  6. METOPROLOL [Concomitant]
     Route: 065
     Dates: start: 2009
  7. SIMVASTATIN [Concomitant]
     Route: 065
     Dates: start: 2009

REACTIONS (2)
  - Haemarthrosis [Recovered/Resolved]
  - Joint effusion [Recovered/Resolved]
